FAERS Safety Report 13820963 (Version 1)
Quarter: 2017Q3

REPORT INFORMATION
  Report Type: Spontaneous
  Country: US (occurrence: US)
  Receive Date: 20170801
  Receipt Date: 20170801
  Transmission Date: 20171127
  Serious: No
  Sender: FDA-Public Use
  Company Number: US-GLENMARK PHARMACEUTICALS-2017GMK027113

PATIENT

DRUGS (5)
  1. ATENOLOL. [Concomitant]
     Active Substance: ATENOLOL
     Indication: CARDIAC DISORDER
     Dosage: 25 MG, QD
     Route: 048
  2. ASPIRIN                            /00002701/ [Concomitant]
     Active Substance: ASPIRIN
     Indication: CARDIAC DISORDER
     Dosage: 81 MG, QD
     Route: 048
  3. MUPIROCIN. [Suspect]
     Active Substance: MUPIROCIN
     Indication: BLISTER
     Dosage: 3 APPLICATIONS, TID
     Route: 061
     Dates: start: 20170403, end: 20170406
  4. FISH OIL [Concomitant]
     Active Substance: FISH OIL
     Indication: SUPPLEMENTATION THERAPY
     Dosage: 1000 MG, QD
     Route: 048
  5. LISINOPRIL. [Concomitant]
     Active Substance: LISINOPRIL
     Indication: CARDIAC DISORDER
     Dosage: 40 MG, QD
     Route: 048

REACTIONS (4)
  - Application site pain [Not Recovered/Not Resolved]
  - Condition aggravated [Recovering/Resolving]
  - Off label use [Unknown]
  - Blister [Recovering/Resolving]

NARRATIVE: CASE EVENT DATE: 20170403
